FAERS Safety Report 26122767 (Version 1)
Quarter: 2025Q4

REPORT INFORMATION
  Report Type: Spontaneous
  Country: US (occurrence: US)
  Receive Date: 20251204
  Receipt Date: 20251204
  Transmission Date: 20260118
  Serious: No
  Sender: NOVARTIS
  Company Number: US-002147023-NVSC2025US181766

PATIENT

DRUGS (1)
  1. COSENTYX [Suspect]
     Active Substance: SECUKINUMAB
     Indication: Product used for unknown indication
     Dosage: UNK
     Route: 065

REACTIONS (6)
  - Injection site pain [Unknown]
  - Device delivery system issue [Unknown]
  - Drug dose omission by device [Unknown]
  - Device leakage [Unknown]
  - Device deployment issue [Unknown]
  - Accidental exposure to product [Unknown]
